FAERS Safety Report 8786320 (Version 2)
Quarter: 2012Q4

REPORT INFORMATION
  Report Type: Report from Study
  Country: BE (occurrence: BE)
  Receive Date: 20120914
  Receipt Date: 20121015
  Transmission Date: 20130627
  Serious: Yes (Death)
  Sender: FDA-Public Use
  Company Number: BE-ROCHE-1116908

PATIENT
  Age: 91 Year
  Sex: Male

DRUGS (1)
  1. MIRCERA [Suspect]
     Indication: RENAL FAILURE
     Route: 065
     Dates: start: 20120810, end: 20120826

REACTIONS (1)
  - Cardiovascular disorder [Fatal]
